FAERS Safety Report 15745876 (Version 1)
Quarter: 2018Q4

REPORT INFORMATION
  Report Type: Spontaneous
  Country: GB (occurrence: GB)
  Receive Date: 20181220
  Receipt Date: 20181220
  Transmission Date: 20190205
  Serious: Yes (Other)
  Sender: FDA-Public Use
  Company Number: GB-MIDATECHPHARMA-2018-UK-000136

PATIENT
  Age: 58 Year
  Sex: Female

DRUGS (3)
  1. TAMOXIFEN (NON-SPECIFIC) [Suspect]
     Active Substance: TAMOXIFEN
     Indication: BREAST CANCER
     Dosage: 20 MG DAILY
  2. QUININE SULFATE. [Concomitant]
     Active Substance: QUININE SULFATE
     Dosage: 300 MG AT NIGHT
  3. ASPIRIN. [Concomitant]
     Active Substance: ASPIRIN
     Dosage: 75 MG DAILY

REACTIONS (2)
  - Non-alcoholic steatohepatitis [Unknown]
  - Porphyria non-acute [Unknown]
